FAERS Safety Report 18872810 (Version 2)
Quarter: 2021Q1

REPORT INFORMATION
  Report Type: Spontaneous
  Country: JP (occurrence: JP)
  Receive Date: 20210210
  Receipt Date: 20210317
  Transmission Date: 20210420
  Serious: Yes (Hospitalization, Other)
  Sender: FDA-Public Use
  Company Number: JP-UCBSA-2021005470

PATIENT
  Age: 78 Year
  Sex: Male
  Weight: 61.7 kg

DRUGS (3)
  1. VIMPAT [Suspect]
     Active Substance: LACOSAMIDE
     Indication: PARTIAL SEIZURES WITH SECONDARY GENERALISATION
     Dosage: 200 MILLIGRAM DAILY
     Route: 048
     Dates: start: 20201009, end: 20201206
  2. VIMPAT [Suspect]
     Active Substance: LACOSAMIDE
     Indication: GENERALISED TONIC-CLONIC SEIZURE
  3. VIMPAT [Suspect]
     Active Substance: LACOSAMIDE
     Indication: OFF LABEL USE

REACTIONS (3)
  - Cerebral infarction [Unknown]
  - Off label use [Unknown]
  - Seizure [Unknown]

NARRATIVE: CASE EVENT DATE: 20201009
